FAERS Safety Report 5375564-4 (Version None)
Quarter: 2007Q2

REPORT INFORMATION
  Report Type: 
  Country: None (occurrence: None)
  Receive Date: 20070629
  Receipt Date: 20070619
  Transmission Date: 20071010
  Serious: Yes (Hospitalization, Disabling, Other)
  Sender: FDA-Public Use
  Company Number: US-GENENTECH-234296

PATIENT
  Sex: Male

DRUGS (5)
  1. RITUXAN [Suspect]
     Indication: NON-HODGKIN'S LYMPHOMA
     Dosage: 800 MG, 1/WEEK X 4
     Route: 042
     Dates: start: 20050601
  2. REMERON [Concomitant]
     Indication: DEPRESSION
     Dosage: 30 MG, QD
  3. TYLENOL [Concomitant]
     Indication: PREMEDICATION
     Dosage: 650 MG, UNK
     Route: 048
  4. BENADRYL [Concomitant]
     Indication: PREMEDICATION
     Dosage: 50 MG, UNK
     Route: 048
  5. ACCOLATE [Concomitant]
     Indication: PREMEDICATION
     Dosage: 20 MG, UNK
     Route: 048

REACTIONS (4)
  - HYPOGAMMAGLOBULINAEMIA [None]
  - NERVOUS SYSTEM DISORDER [None]
  - POLYNEUROPATHY [None]
  - STAPHYLOCOCCAL INFECTION [None]
